FAERS Safety Report 9022826 (Version 1)
Quarter: 2013Q1

REPORT INFORMATION
  Report Type: Spontaneous
  Country: US (occurrence: US)
  Receive Date: 20130120
  Receipt Date: 20130120
  Transmission Date: 20140127
  Serious: No
  Sender: FDA-Public Use
  Company Number: US-ALLERGAN-1217297US

PATIENT
  Age: 43 Year
  Sex: Female

DRUGS (2)
  1. BOTOX? [Suspect]
     Indication: MIGRAINE
     Dosage: 100 UNITS, SINGLE
     Route: 030
     Dates: start: 20121129, end: 20121129
  2. BOTOX? [Suspect]
     Dosage: 100 UNITS, SINGLE
     Route: 030
     Dates: start: 20121129, end: 20121129

REACTIONS (1)
  - Furuncle [Recovered/Resolved]
